FAERS Safety Report 15518387 (Version 1)
Quarter: 2018Q4

REPORT INFORMATION
  Report Type: Spontaneous
  Country: US (occurrence: US)
  Receive Date: 20181017
  Receipt Date: 20181017
  Transmission Date: 20190205
  Serious: Yes (Other)
  Sender: FDA-Public Use
  Company Number: US-MALLINCKRODT-T201804412

PATIENT
  Sex: Female

DRUGS (1)
  1. H.P. ACTHAR [Suspect]
     Active Substance: CORTICOTROPIN
     Indication: CHORIORETINITIS
     Dosage: 80 UNITS (1 ML), EVERY 2 DAYS
     Route: 058

REACTIONS (1)
  - Diabetes mellitus [Not Recovered/Not Resolved]
